FAERS Safety Report 7585043-1 (Version None)
Quarter: 2011Q2

REPORT INFORMATION
  Report Type: 
  Country: None (occurrence: None)
  Receive Date: 20110630
  Receipt Date: 20110622
  Transmission Date: 20111010
  Serious: Yes (Other)
  Sender: FDA-Public Use
  Company Number: US-RB-011473-10

PATIENT
  Age: 29 Year
  Sex: Male

DRUGS (2)
  1. SUBOXONE [Suspect]
     Indication: DRUG DEPENDENCE
     Dosage: SUBLINGUAL FILM
     Route: 060
     Dates: start: 20101001
  2. SUBOXONE [Suspect]
     Indication: DRUG DEPENDENCE
     Dosage: DOSING INFORMATION IS UNKNOWN
     Route: 065

REACTIONS (16)
  - DIARRHOEA [None]
  - ASTHENIA [None]
  - WEIGHT INCREASED [None]
  - CIRCADIAN RHYTHM SLEEP DISORDER [None]
  - NAUSEA [None]
  - ABDOMINAL PAIN UPPER [None]
  - BACK PAIN [None]
  - DRUG WITHDRAWAL SYNDROME [None]
  - SUICIDAL IDEATION [None]
  - THERAPEUTIC RESPONSE DECREASED [None]
  - UNDERDOSE [None]
  - PAIN [None]
  - INCREASED APPETITE [None]
  - ABNORMAL LOSS OF WEIGHT [None]
  - EUPHORIC MOOD [None]
  - MUSCULOSKELETAL STIFFNESS [None]
